FAERS Safety Report 7546599-8 (Version None)
Quarter: 2011Q2

REPORT INFORMATION
  Report Type: 
  Country: None (occurrence: None)
  Receive Date: 20110614
  Receipt Date: 20110606
  Transmission Date: 20111010
  Serious: Yes (Hospitalization)
  Sender: FDA-Public Use
  Company Number: FR-TEVA-265909ISR

PATIENT
  Sex: Female
  Weight: 51 kg

DRUGS (22)
  1. MORPHINE SULFATE [Concomitant]
     Dosage: 160 MILLIGRAM;
     Route: 048
     Dates: start: 20100624
  2. ACETAMINOPHEN [Concomitant]
     Indication: PYREXIA
  3. DEXAMETHASONE [Suspect]
     Indication: MULTIPLE MYELOMA
     Dates: start: 20100623
  4. DEXAMETHASONE [Suspect]
     Dates: start: 20110106, end: 20110114
  5. LENALIDOMIDE [Suspect]
     Indication: MULTIPLE MYELOMA
     Route: 048
     Dates: start: 20100623
  6. PHENOXYMETHYLPENICILLIN [Concomitant]
     Indication: PROPHYLAXIS
     Dosage: 4000000 IU (INTERNATIONAL UNIT);
     Route: 048
     Dates: start: 20100629
  7. LENALIDOMIDE [Suspect]
     Dosage: 25 MILLIGRAM;
     Route: 048
     Dates: start: 20110202
  8. BACTRIM [Concomitant]
     Indication: INFECTION PROPHYLAXIS
     Route: 048
     Dates: start: 20100629
  9. VALACYCLOVIR [Concomitant]
     Indication: PROPHYLAXIS
     Dosage: 2000 MILLIGRAM;
     Route: 048
     Dates: start: 20100621
  10. LACTULOSE [Concomitant]
     Indication: CONSTIPATION PROPHYLAXIS
     Dosage: 90 GRAM;
     Route: 048
     Dates: start: 20100619
  11. LEKOVIT CA [Concomitant]
     Indication: PRODUCT USED FOR UNKNOWN INDICATION
     Route: 048
  12. DEXAMETHASONE [Suspect]
     Dates: start: 20110202
  13. PINDOLOL [Concomitant]
     Indication: HYPERTENSION
     Dosage: 10 MILLIGRAM;
     Route: 048
  14. MORPHINE SULFATE [Concomitant]
     Indication: BACK PAIN
     Dosage: 120 MILLIGRAM;
     Route: 048
     Dates: start: 20100622, end: 20100623
  15. ACETAMINOPHEN [Concomitant]
     Indication: PAIN
     Route: 048
     Dates: start: 20100807
  16. LENALIDOMIDE [Suspect]
     Route: 048
     Dates: start: 20100106, end: 20110114
  17. MICROLAX [Concomitant]
     Indication: PROPHYLAXIS
     Dates: start: 20100701
  18. MICROLAX [Concomitant]
     Indication: PYREXIA
  19. LEUCOVORIN CALCIUM [Concomitant]
     Indication: PROPHYLAXIS
     Route: 048
     Dates: start: 20100629
  20. NADROPARIN CALCIUM [Concomitant]
     Indication: PULMONARY EMBOLISM
     Dosage: .5 ML;
     Route: 058
     Dates: start: 20100722
  21. HEPARIN SODIUM [Concomitant]
     Indication: PULMONARY EMBOLISM
     Dosage: 2 ML;
     Route: 058
     Dates: start: 20100621, end: 20100720
  22. CLORAZEPATE DIPOTASSIUM [Concomitant]
     Indication: ANXIETY
     Dosage: 5 MILLIGRAM;
     Route: 048
     Dates: start: 20100708

REACTIONS (1)
  - PNEUMONIA [None]
